FAERS Safety Report 19598487 (Version 1)
Quarter: 2021Q3

REPORT INFORMATION
  Report Type: Report from Study
  Country: ES (occurrence: ES)
  Receive Date: 20210722
  Receipt Date: 20210722
  Transmission Date: 20211014
  Serious: Yes (Other)
  Sender: FDA-Public Use
  Company Number: ES-TAKEDA-2021TUS043957

PATIENT
  Age: 6 Year
  Sex: Male

DRUGS (8)
  1. URSODEOXYCHOLIC ACID [Concomitant]
     Active Substance: URSODIOL
     Indication: HYPERBILIRUBINAEMIA
     Dosage: 150 MILLIGRAM, TID
     Route: 048
     Dates: start: 20201110
  2. TEDUGLUTIDE [Suspect]
     Active Substance: TEDUGLUTIDE
     Indication: SHORT-BOWEL SYNDROME
     Dosage: 8 MILLIGRAM (0.05MG/KG), QD
     Route: 065
     Dates: start: 20170820
  3. ACETAMINOPHEN. [Concomitant]
     Active Substance: ACETAMINOPHEN
     Indication: ABDOMINAL PAIN
     Dosage: 170 MILLIGRAM
     Route: 048
     Dates: start: 20210212, end: 20210215
  4. FLUTICASONE. [Concomitant]
     Active Substance: FLUTICASONE
     Indication: RHINITIS
     Dosage: 27.50 MICROGRAM, QD
     Route: 042
     Dates: start: 20200928
  5. TEDUGLUTIDE [Suspect]
     Active Substance: TEDUGLUTIDE
     Indication: SHORT-BOWEL SYNDROME
     Dosage: 8 MILLIGRAM (0.05MG/KG), QD
     Route: 065
     Dates: start: 20170820
  6. URSOCHOL [Concomitant]
     Active Substance: URSODIOL
     Indication: LIVER DISORDER
     Dosage: 150 MILLIGRAM, TID
     Route: 048
     Dates: start: 20201023
  7. TEDUGLUTIDE [Suspect]
     Active Substance: TEDUGLUTIDE
     Indication: SHORT-BOWEL SYNDROME
     Dosage: 8 MILLIGRAM (0.05MG/KG), QD
     Route: 065
     Dates: start: 20170820
  8. TEDUGLUTIDE [Suspect]
     Active Substance: TEDUGLUTIDE
     Indication: SHORT-BOWEL SYNDROME
     Dosage: 8 MILLIGRAM (0.05MG/KG), QD
     Route: 065
     Dates: start: 20170820

REACTIONS (1)
  - Hyperbilirubinaemia [Not Recovered/Not Resolved]

NARRATIVE: CASE EVENT DATE: 20201110
